FAERS Safety Report 6098042-6 (Version None)
Quarter: 2009Q1

REPORT INFORMATION
  Report Type: 
  Country: None (occurrence: None)
  Receive Date: 20090227
  Receipt Date: 20090224
  Transmission Date: 20090719
  Serious: Yes (Death, Hospitalization, Other)
  Sender: FDA-Public Use
  Company Number: PHHO2007JP10165

PATIENT
  Sex: Female
  Weight: 43 kg

DRUGS (2)
  1. NEORAL [Suspect]
     Indication: LIVER TRANSPLANT
     Dosage: 15MG/KG/DAY
     Route: 048
     Dates: start: 20070215, end: 20081219
  2. CELLCEPT [Concomitant]
     Indication: LIVER TRANSPLANT
     Dosage: 1500 MG/DAILY
     Route: 048
     Dates: start: 20070314, end: 20090106

REACTIONS (9)
  - BILE DUCT STENOSIS [None]
  - BILE DUCT T-TUBE REMOVAL [None]
  - BIOPSY LIVER [None]
  - HEPATIC FUNCTION ABNORMAL [None]
  - HEPATITIS C [None]
  - HUMAN T-CELL LYMPHOTROPIC VIRUS TYPE I INFECTION [None]
  - LIVER TRANSPLANT REJECTION [None]
  - MENINGISM [None]
  - PULMONARY FIBROSIS [None]
